FAERS Safety Report 11890198 (Version 1)
Quarter: 2016Q1

REPORT INFORMATION
  Report Type: Spontaneous
  Country: US (occurrence: US)
  Receive Date: 20160105
  Receipt Date: 20160105
  Transmission Date: 20160526
  Serious: No
  Sender: FDA-Public Use
  Company Number: US-BAYER-2016-001121

PATIENT
  Age: 18 Year
  Sex: Female
  Weight: 61.22 kg

DRUGS (3)
  1. CLARITIN [Suspect]
     Active Substance: LORATADINE
     Indication: SNEEZING
  2. CLARITIN [Suspect]
     Active Substance: LORATADINE
     Indication: SINUS DISORDER
  3. CLARITIN [Suspect]
     Active Substance: LORATADINE
     Indication: RHINORRHOEA
     Dosage: 1 DF, QD WITH FOOD
     Route: 048
     Dates: start: 2015, end: 20160103

REACTIONS (3)
  - Dizziness [Recovered/Resolved]
  - Expired product administered [None]
  - Off label use [None]

NARRATIVE: CASE EVENT DATE: 2015
